FAERS Safety Report 7145573-3 (Version None)
Quarter: 2010Q4

REPORT INFORMATION
  Report Type: 
  Country: None (occurrence: None)
  Receive Date: 20101208
  Receipt Date: 20101201
  Transmission Date: 20110411
  Serious: Yes (Death, Hospitalization, Other)
  Sender: FDA-Public Use
  Company Number: US-SANOFI-AVENTIS-2010SA073362

PATIENT
  Age: 66 Year
  Sex: Male
  Weight: 75 kg

DRUGS (5)
  1. JEVTANA KIT [Suspect]
     Indication: PROSTATE CANCER
     Route: 051
     Dates: start: 20100813, end: 20100813
  2. JEVTANA KIT [Suspect]
     Route: 051
     Dates: start: 20100927, end: 20100927
  3. ARANESP [Concomitant]
     Dates: start: 20100813
  4. MS CONTIN [Concomitant]
     Indication: PAIN
     Dates: start: 20100923
  5. MS CONTIN [Concomitant]
     Dates: start: 20100101

REACTIONS (9)
  - ANAEMIA [None]
  - BONE PAIN [None]
  - CONSTIPATION [None]
  - DECREASED APPETITE [None]
  - DEHYDRATION [None]
  - DISEASE PROGRESSION [None]
  - HAEMOGLOBIN DECREASED [None]
  - NAUSEA [None]
  - THROMBOCYTOPENIA [None]
